FAERS Safety Report 25284245 (Version 2)
Quarter: 2025Q3

REPORT INFORMATION
  Report Type: Spontaneous
  Country: US (occurrence: US)
  Receive Date: 20250508
  Receipt Date: 20250810
  Transmission Date: 20251020
  Serious: No
  Sender: ALEXION PHARMACEUTICALS
  Company Number: US-AstraZeneca-CH-00864777AP

PATIENT
  Sex: Male

DRUGS (3)
  1. BYDUREON BCISE [Suspect]
     Active Substance: EXENATIDE
     Route: 065
  2. BYDUREON BCISE [Suspect]
     Active Substance: EXENATIDE
  3. BYDUREON [Suspect]
     Active Substance: EXENATIDE
     Route: 065

REACTIONS (6)
  - Glycosylated haemoglobin increased [Unknown]
  - Adverse event [Unknown]
  - Injection site pain [Unknown]
  - Product dose omission issue [Unknown]
  - Pain in extremity [Unknown]
  - Device delivery system issue [Unknown]
